FAERS Safety Report 23535450 (Version 1)
Quarter: 2024Q1

REPORT INFORMATION
  Report Type: Spontaneous
  Country: ZA (occurrence: None)
  Receive Date: 20240218
  Receipt Date: 20240218
  Transmission Date: 20240410
  Serious: Yes (Hospitalization)
  Sender: FDA-Public Use
  Company Number: 2024A035029

PATIENT
  Age: 26298 Day
  Sex: Male

DRUGS (5)
  1. DAPAGLIFLOZIN PROPANEDIOL [Suspect]
     Active Substance: DAPAGLIFLOZIN PROPANEDIOL
     Indication: Diabetes mellitus
     Route: 048
  2. CARVEDILOL [Concomitant]
     Active Substance: CARVEDILOL
     Indication: Hypertension
  3. ECOTRIN [Concomitant]
     Active Substance: ASPIRIN
     Indication: Blood test
  4. VILDAGLIPTIN [Concomitant]
     Active Substance: VILDAGLIPTIN
     Indication: Diabetes mellitus
  5. ASPOVOR [Concomitant]
     Indication: Blood cholesterol

REACTIONS (3)
  - Asthenia [Unknown]
  - Chest pain [Unknown]
  - Vomiting [Unknown]
